FAERS Safety Report 7009991-6 (Version None)
Quarter: 2010Q3

REPORT INFORMATION
  Report Type: 
  Country: None (occurrence: None)
  Receive Date: 20100921
  Receipt Date: 20100902
  Transmission Date: 20110219
  Serious: Yes (Death, Other)
  Sender: FDA-Public Use
  Company Number: UK-ACCORD-003573

PATIENT
  Age: 15 Year
  Sex: Female

DRUGS (4)
  1. MYCOPHENOLATE MOFETIL [Suspect]
     Indication: IMMUNOSUPPRESSION
  2. PREDNISOLONE [Suspect]
     Indication: IMMUNOSUPPRESSION
  3. TACROLIMUS [Suspect]
     Indication: IMMUNOSUPPRESSION
  4. INFLIXIMAB(INFLIXIMAB) [Suspect]
     Indication: IMMUNOSUPPRESSION

REACTIONS (15)
  - ARTHRALGIA [None]
  - CANDIDIASIS [None]
  - CONVULSION [None]
  - CUSHINGOID [None]
  - DISEASE PROGRESSION [None]
  - DISEASE RECURRENCE [None]
  - HAEMATURIA [None]
  - HISTOPLASMOSIS DISSEMINATED [None]
  - HYPERTENSION [None]
  - MULTI-ORGAN FAILURE [None]
  - NECROTISING GRANULOMATOUS LYMPHADENITIS [None]
  - PERITONEAL DIALYSIS [None]
  - SARCOIDOSIS [None]
  - TRANSPLANT REJECTION [None]
  - TUBULOINTERSTITIAL NEPHRITIS [None]
